FAERS Safety Report 26208965 (Version 1)
Quarter: 2025Q4

REPORT INFORMATION
  Report Type: Spontaneous
  Country: US (occurrence: None)
  Receive Date: 20251226
  Receipt Date: 20251226
  Transmission Date: 20260117
  Serious: Yes (Hospitalization)
  Sender: FDA-CTU
  Company Number: None

PATIENT
  Age: 66 Year
  Sex: Female

DRUGS (11)
  1. EPCLUSA [Suspect]
     Active Substance: SOFOSBUVIR\VELPATASVIR
     Indication: Hepatitis C
     Dosage: 400-100 MG DAILY ORAL
     Route: 048
     Dates: start: 20251106
  2. SPIRONOLACTONE 25MG TABLETS [Concomitant]
  3. ATORVASTATIN CALCIUM [Concomitant]
     Active Substance: ATORVASTATIN CALCIUM
  4. FARXIGA 10MG TABLETS [Concomitant]
  5. ALBUTEROL 0.083%(2.5MG/3ML) INH SOL [Concomitant]
  6. CLOPIDOGREL [Concomitant]
     Active Substance: CLOPIDOGREL BISULFATE
  7. LOSARTAN POTASSIUM [Concomitant]
     Active Substance: LOSARTAN POTASSIUM
  8. TRELEGY ELLIPTA 100-62.5MCG INH 30P [Concomitant]
  9. TIZANIDINE [Concomitant]
     Active Substance: TIZANIDINE
  10. ROPINIROLE 0.5MG TABLETS [Concomitant]
  11. OXYCODONE 5MG IMMEDIATE REL TABS [Concomitant]

REACTIONS (3)
  - Blood pressure decreased [None]
  - Pancreatic cyst [None]
  - Intentional dose omission [None]

NARRATIVE: CASE EVENT DATE: 20251223
